FAERS Safety Report 5282055-8 (Version None)
Quarter: 2007Q1

REPORT INFORMATION
  Report Type: 
  Country: None (occurrence: None)
  Receive Date: 20070330
  Receipt Date: 20070323
  Transmission Date: 20070707
  Serious: Yes (Other)
  Sender: FDA-Public Use
  Company Number: CN-PFIZER INC-2007022931

PATIENT

DRUGS (2)
  1. ZOLOFT [Suspect]
     Indication: ANXIETY
     Route: 048
     Dates: start: 20040901, end: 20060301
  2. ALCOHOL [Suspect]

REACTIONS (9)
  - ANXIETY [None]
  - DIZZINESS [None]
  - HALLUCINATION [None]
  - HEADACHE [None]
  - MEMORY IMPAIRMENT [None]
  - PANIC REACTION [None]
  - PARAESTHESIA [None]
  - SENSORY DISTURBANCE [None]
  - SUICIDAL IDEATION [None]
